FAERS Safety Report 7772814-1 (Version None)
Quarter: 2011Q3

REPORT INFORMATION
  Report Type: 
  Country: None (occurrence: None)
  Receive Date: 20110922
  Receipt Date: 20100412
  Transmission Date: 20111222
  Serious: Yes (Hospitalization)
  Sender: FDA-Public Use
  Company Number: US-ASTRAZENECA-2008UW12777

PATIENT
  Age: 598 Month
  Sex: Female

DRUGS (11)
  1. PAXIL [Concomitant]
     Route: 048
     Dates: start: 20050609
  2. TRIAVIL [Concomitant]
     Dosage: 4/50 QHS
     Dates: start: 19960920
  3. MULTIPLE VITAMIN [Concomitant]
  4. SYMMETREL [Concomitant]
     Dates: start: 19991222
  5. COGENTIN [Concomitant]
     Dates: start: 19991222
  6. HALDOL [Concomitant]
     Dates: start: 19991222
  7. SEROQUEL [Suspect]
     Dosage: 100 MG TO 600 MG
     Route: 048
     Dates: start: 20000216
  8. ZOLOFT [Concomitant]
     Dates: start: 19960920
  9. LISINOPRIL [Concomitant]
     Dates: start: 20070108
  10. TRAZODONE HCL [Concomitant]
     Route: 048
     Dates: start: 20050609
  11. MELLARIL [Concomitant]
     Dates: start: 19991222

REACTIONS (2)
  - VISION BLURRED [None]
  - TYPE 2 DIABETES MELLITUS [None]
